FAERS Safety Report 26073399 (Version 1)
Quarter: 2025Q4

REPORT INFORMATION
  Report Type: Spontaneous
  Country: GB (occurrence: GB)
  Receive Date: 20251121
  Receipt Date: 20251121
  Transmission Date: 20260118
  Serious: Yes (Other)
  Sender: TEVA
  Company Number: None

PATIENT
  Sex: Female

DRUGS (4)
  1. EPIRUBICIN [Suspect]
     Active Substance: EPIRUBICIN
     Indication: Breast cancer
     Dosage: UNKNOWN
     Route: 065
  2. FAMOTIDINE [Concomitant]
     Active Substance: FAMOTIDINE
     Indication: Product used for unknown indication
  3. DEXAMETHASONE [Concomitant]
     Active Substance: DEXAMETHASONE
     Indication: Product used for unknown indication
  4. PACLITAXEL [Suspect]
     Active Substance: PACLITAXEL
     Indication: Breast cancer
     Dosage: 144MG
     Route: 065

REACTIONS (3)
  - Neuropathy peripheral [Unknown]
  - Rash [Unknown]
  - Fatigue [Unknown]

NARRATIVE: CASE EVENT DATE: 20251112
